FAERS Safety Report 8268314-5 (Version None)
Quarter: 2012Q2

REPORT INFORMATION
  Report Type: 
  Country: None (occurrence: None)
  Receive Date: 20120409
  Receipt Date: 20120328
  Transmission Date: 20120825
  Serious: Yes (Hospitalization)
  Sender: FDA-Public Use
  Company Number: SE-MEDIMMUNE-MEDI-0015373

PATIENT
  Sex: Female

DRUGS (1)
  1. SYNAGIS [Suspect]
     Dates: end: 20120326

REACTIONS (4)
  - INFECTION [None]
  - OXYGEN CONSUMPTION INCREASED [None]
  - GENERAL PHYSICAL HEALTH DETERIORATION [None]
  - INCREASED BRONCHIAL SECRETION [None]
